FAERS Safety Report 21150306 (Version 1)
Quarter: 2022Q3

REPORT INFORMATION
  Report Type: Spontaneous
  Country: US (occurrence: US)
  Receive Date: 20220729
  Receipt Date: 20220729
  Transmission Date: 20221027
  Serious: No
  Sender: FDA-Public Use
  Company Number: US-NOVOPROD-907845

PATIENT
  Sex: Female

DRUGS (1)
  1. OZEMPIC [Suspect]
     Active Substance: SEMAGLUTIDE
     Indication: Product used for unknown indication
     Dosage: 1 MG, QW
     Route: 065
     Dates: start: 2020

REACTIONS (4)
  - Headache [Unknown]
  - Sinusitis [Not Recovered/Not Resolved]
  - Insomnia [Unknown]
  - Device mechanical issue [Recovered/Resolved]

NARRATIVE: CASE EVENT DATE: 20211101
